FAERS Safety Report 13166715 (Version 1)
Quarter: 2017Q1

REPORT INFORMATION
  Report Type: Spontaneous
  Country: US (occurrence: US)
  Receive Date: 20170127
  Receipt Date: 20170127
  Transmission Date: 20170428
  Serious: Yes (Hospitalization)
  Sender: FDA-Public Use
  Company Number: None

PATIENT
  Age: 67 Year
  Sex: Female
  Weight: 79.8 kg

DRUGS (2)
  1. PEMBROLIZUMAB 200MG MERCK RESEARCH LAB [Suspect]
     Active Substance: PEMBROLIZUMAB
     Indication: TRANSITIONAL CELL CARCINOMA
     Dosage: Q3WEEKS INTRAVENOUS
     Route: 042
     Dates: start: 20170112, end: 20170112
  2. B-701 25MG/KG [Suspect]
     Active Substance: INVESTIGATIONAL PRODUCT
     Indication: TRANSITIONAL CELL CARCINOMA
     Dosage: Q3WEEKS INTRAVENOUS
     Route: 042
     Dates: start: 20170112, end: 20170119

REACTIONS (11)
  - Malaise [None]
  - Haemoglobin decreased [None]
  - White blood cell count increased [None]
  - Fatigue [None]
  - Pyrexia [None]
  - Abdominal pain [None]
  - Urinary tract infection [None]
  - Dyspnoea [None]
  - Blood sodium decreased [None]
  - Heart rate increased [None]
  - Decreased appetite [None]

NARRATIVE: CASE EVENT DATE: 20170126
